FAERS Safety Report 19420049 (Version 1)
Quarter: 2021Q2

REPORT INFORMATION
  Report Type: Spontaneous
  Country: US (occurrence: US)
  Receive Date: 20210615
  Receipt Date: 20210615
  Transmission Date: 20210717
  Serious: Yes (Hospitalization, Other)
  Sender: FDA-Public Use
  Company Number: US-MYLANLABS-2021M1034903

PATIENT
  Age: 30 Year
  Sex: Male

DRUGS (2)
  1. PREDNISONE. [Suspect]
     Active Substance: PREDNISONE
     Indication: COLITIS ULCERATIVE
     Dosage: SCHEDULED TO BE A 5?WEEK COURSE
     Route: 065
     Dates: start: 2018, end: 2018
  2. MESALAZINE [Suspect]
     Active Substance: MESALAMINE
     Indication: COLITIS ULCERATIVE
     Dosage: UNK
     Route: 065
     Dates: start: 2018, end: 2018

REACTIONS (7)
  - Drug ineffective [Unknown]
  - Restlessness [Unknown]
  - Insomnia [Unknown]
  - Weight increased [Unknown]
  - Pancreatitis [Unknown]
  - Irritability [Unknown]
  - Mood swings [Unknown]

NARRATIVE: CASE EVENT DATE: 2018
